FAERS Safety Report 5157252-2 (Version None)
Quarter: 2006Q4

REPORT INFORMATION
  Report Type: 
  Country: None (occurrence: None)
  Receive Date: 20061127
  Receipt Date: 20061117
  Transmission Date: 20070319
  Serious: Yes (Hospitalization, Other)
  Sender: FDA-Public Use
  Company Number: US-NOVOPROD-258640

PATIENT
  Age: 44 Year
  Sex: Female

DRUGS (2)
  1. NOVOLOG [Suspect]
     Indication: INTENTIONAL OVERDOSE
     Dosage: 10 IU, QD
     Dates: start: 20060101, end: 20061115
  2. NOVOLOG [Suspect]
     Indication: DIABETES MELLITUS INSULIN-DEPENDENT

REACTIONS (3)
  - HYPOGLYCAEMIA [None]
  - INTENTIONAL OVERDOSE [None]
  - SUICIDE ATTEMPT [None]
